FAERS Safety Report 5739202-0 (Version None)
Quarter: 2008Q2

REPORT INFORMATION
  Report Type: 
  Country: None (occurrence: None)
  Receive Date: 20080515
  Receipt Date: 20080512
  Transmission Date: 20081010
  Serious: Yes (Hospitalization, Other)
  Sender: FDA-Public Use
  Company Number: US-BRISTOL-MYERS SQUIBB COMPANY-14188213

PATIENT
  Age: 62 Year
  Sex: Female
  Weight: 46 kg

DRUGS (2)
  1. CISPLATIN [Suspect]
     Indication: HEAD AND NECK CANCER
     Dosage: START DATE OF FIRST COURSE: 26-DEC-2007
     Route: 042
     Dates: start: 20080116, end: 20080116
  2. RADIATION THERAPY [Suspect]
     Indication: HEAD AND NECK CANCER
     Dosage: 70 DOSAGEFORM = 70 GY. NUMBER OF FRACTIONS 35;NUMBER OF ELASPSED DAYS:35.
     Dates: start: 20080205, end: 20080205

REACTIONS (4)
  - DYSPHAGIA [None]
  - MUCOSAL INFLAMMATION [None]
  - STOMATITIS [None]
  - WEIGHT DECREASED [None]
